FAERS Safety Report 11124107 (Version 1)
Quarter: 2015Q2

REPORT INFORMATION
  Report Type: Spontaneous
  Country: IT (occurrence: IT)
  Receive Date: 20150520
  Receipt Date: 20150520
  Transmission Date: 20150821
  Serious: Yes (Other)
  Sender: FDA-Public Use
  Company Number: PHHY2015IT058077

PATIENT
  Age: 71 Year
  Sex: Male

DRUGS (1)
  1. ALLOPURINOL. [Suspect]
     Active Substance: ALLOPURINOL
     Indication: HYPERURICAEMIA
     Dosage: 150 MG
     Route: 065

REACTIONS (3)
  - Skin reaction [Recovered/Resolved]
  - Orthopnoea [Recovered/Resolved]
  - Dizziness [Recovered/Resolved]
